FAERS Safety Report 21649859 (Version 4)
Quarter: 2023Q1

REPORT INFORMATION
  Report Type: Spontaneous
  Country: US (occurrence: US)
  Receive Date: 20221128
  Receipt Date: 20230118
  Transmission Date: 20230417
  Serious: Yes (Life-Threatening, Hospitalization)
  Sender: FDA-Public Use
  Company Number: US-TEVA-2022-US-2827893

PATIENT
  Age: 41 Year
  Sex: Female

DRUGS (1)
  1. ETHOSUXIMIDE [Suspect]
     Active Substance: ETHOSUXIMIDE
     Indication: Intentional overdose
     Route: 048

REACTIONS (10)
  - Heart rate increased [Recovering/Resolving]
  - Anion gap increased [Recovering/Resolving]
  - Blood lactic acid increased [Recovering/Resolving]
  - Blood potassium decreased [Recovering/Resolving]
  - Seizure [Recovering/Resolving]
  - Bacteraemia [Recovering/Resolving]
  - Pneumonia staphylococcal [Recovering/Resolving]
  - Depressed level of consciousness [Recovering/Resolving]
  - Unresponsive to stimuli [Recovering/Resolving]
  - Intentional overdose [Unknown]
